FAERS Safety Report 6153669-8 (Version None)
Quarter: 2009Q2

REPORT INFORMATION
  Report Type: 
  Country: None (occurrence: None)
  Receive Date: 20090413
  Receipt Date: 20090402
  Transmission Date: 20091009
  Serious: Yes (Other)
  Sender: FDA-Public Use
  Company Number: GB-GENENTECH-280901

PATIENT
  Sex: Female
  Weight: 90 kg

DRUGS (1)
  1. ACTILYSE [Suspect]
     Indication: CEREBROVASCULAR ACCIDENT
     Dosage: UNK
     Route: 042
     Dates: start: 20090303, end: 20090303

REACTIONS (2)
  - ATRIAL FIBRILLATION [None]
  - RASH [None]
